FAERS Safety Report 7571665-0 (Version None)
Quarter: 2011Q2

REPORT INFORMATION
  Report Type: 
  Country: None (occurrence: None)
  Receive Date: 20110624
  Receipt Date: 20110616
  Transmission Date: 20111010
  Serious: Yes (Life-Threatening, Hospitalization)
  Sender: FDA-Public Use
  Company Number: JP-MERCK-1106USA01465

PATIENT
  Age: 64 Year
  Sex: Male
  Weight: 62 kg

DRUGS (3)
  1. RABEPRAZOLE SODIUM [Concomitant]
     Dosage: MORNING
     Route: 048
  2. AMOBAN [Concomitant]
     Dosage: BEFORE BEDTIME
     Route: 048
  3. JANUVIA [Suspect]
     Indication: DIABETES MELLITUS
     Route: 048
     Dates: start: 20110301

REACTIONS (1)
  - INTERSTITIAL LUNG DISEASE [None]
